FAERS Safety Report 5088876-9 (Version None)
Quarter: 2006Q3

REPORT INFORMATION
  Report Type: 
  Country: None (occurrence: None)
  Receive Date: 20060824
  Receipt Date: 20060824
  Transmission Date: 20061208
  Serious: Yes (Other)
  Sender: FDA-Public Use
  Company Number: None

PATIENT
  Age: 67 Year
  Sex: Male
  Weight: 66 kg

DRUGS (4)
  1. QUETIAPINE FUMARATE [Suspect]
     Indication: INSOMNIA
     Dosage: 25 MG HS ORAL
     Route: 048
  2. LORAZEPAM [Concomitant]
  3. OMEPRAZOLE [Concomitant]
  4. CYCLOBENZAPRINE HCL [Concomitant]

REACTIONS (1)
  - EYE PAIN [None]
